FAERS Safety Report 9028108 (Version 1)
Quarter: 2013Q1

REPORT INFORMATION
  Report Type: Spontaneous
  Country: US (occurrence: None)
  Receive Date: 20130114
  Receipt Date: 20130114
  Transmission Date: 20140127
  Serious: Yes (Death)
  Sender: FDA-Public Use
  Company Number: None

PATIENT
  Age: 67 Year
  Sex: Female
  Weight: 57.61 kg

DRUGS (7)
  1. IPILIMUMAB [Suspect]
     Indication: METASTATIC MALIGNANT MELANOMA
     Route: 042
     Dates: start: 20121119, end: 20130102
  2. CRESTOR [Concomitant]
  3. DECADRON TAPER [Concomitant]
  4. TYLENOL [Concomitant]
  5. TRAMADOL [Concomitant]
  6. CALCIUM [Concomitant]
  7. MULTIVITAMIN [Concomitant]

REACTIONS (4)
  - Muscular weakness [None]
  - Pain [None]
  - Urosepsis [None]
  - Malignant neoplasm progression [None]
